FAERS Safety Report 8598276-2 (Version None)
Quarter: 2012Q3

REPORT INFORMATION
  Report Type: 
  Country: None (occurrence: None)
  Receive Date: 20120806
  Receipt Date: 20120806
  Transmission Date: 20120928
  Serious: Yes (Hospitalization)
  Sender: FDA-Public Use
  Company Number: None

PATIENT
  Sex: Female
  Weight: 85.2762 kg

DRUGS (3)
  1. AMLODIPINE BESYLATE [Suspect]
     Indication: HYPERTENSION
     Dosage: 1 TABLET EVERY DAY PO
     Route: 048
     Dates: start: 20120629, end: 20120716
  2. PANTOPRAZOLE SODIUM [Suspect]
     Indication: HYPERTENSION
     Dosage: 1 TABLET EVERY DAY PO
     Route: 048
     Dates: start: 20120703, end: 20120717
  3. PANTOPRAZOLE SODIUM [Suspect]
     Indication: CHEST PAIN
     Dosage: 1 TABLET EVERY DAY PO
     Route: 048
     Dates: start: 20120703, end: 20120717

REACTIONS (10)
  - HYPERHIDROSIS [None]
  - DIARRHOEA [None]
  - GASTRITIS EROSIVE [None]
  - CHEST DISCOMFORT [None]
  - RECTAL HAEMORRHAGE [None]
  - COLITIS [None]
  - ABDOMINAL DISTENSION [None]
  - THROAT IRRITATION [None]
  - ERUCTATION [None]
  - FEELING HOT [None]
